FAERS Safety Report 6042593-7 (Version None)
Quarter: 2009Q1

REPORT INFORMATION
  Report Type: 
  Country: None (occurrence: None)
  Receive Date: 20090119
  Receipt Date: 20090116
  Transmission Date: 20090719
  Serious: Yes (Death)
  Sender: FDA-Public Use
  Company Number: FR-JNJFOC-20081206771

PATIENT
  Age: 85 Year
  Sex: Male

DRUGS (12)
  1. TAVANIC [Suspect]
     Indication: PNEUMONIA
     Route: 048
  2. ZOLOFT [Suspect]
     Indication: DEPRESSION
     Route: 048
  3. AUGMENTIN '125' [Concomitant]
     Indication: PNEUMONIA
     Route: 065
  4. ROCEPHIN [Concomitant]
     Indication: PNEUMONIA
     Route: 065
  5. DIFFU K [Concomitant]
     Indication: HYPOKALAEMIA
     Route: 048
  6. AMIODARONE HCL [Concomitant]
     Indication: ARRHYTHMIA
     Route: 048
  7. ATENOLOL [Concomitant]
     Indication: ARRHYTHMIA
     Route: 048
  8. KARDEGIC [Concomitant]
     Indication: ARRHYTHMIA
     Route: 048
  9. LASILIX [Concomitant]
     Indication: OEDEMA PERIPHERAL
     Route: 048
  10. ALLOPURINOL [Concomitant]
     Indication: HYPERURICAEMIA
     Route: 048
  11. ACETAMINOPHEN [Concomitant]
     Indication: PAIN
     Route: 048
  12. LOVENOX [Concomitant]
     Indication: PROPHYLAXIS
     Route: 058

REACTIONS (2)
  - SUDDEN DEATH [None]
  - TREMOR [None]
